FAERS Safety Report 9133528 (Version 1)
Quarter: 2013Q1

REPORT INFORMATION
  Report Type: Spontaneous
  Country: US (occurrence: US)
  Receive Date: 20130116
  Receipt Date: 20130116
  Transmission Date: 20140127
  Serious: Yes (Hospitalization)
  Sender: FDA-Public Use
  Company Number: US-B.I. PHARMACEUTICALS,INC./RIDGEFIELD-2013-BI-00542BP

PATIENT
  Age: 46 Year
  Sex: Female
  Weight: 54 kg

DRUGS (10)
  1. SPIRIVA [Suspect]
     Indication: ASTHMA
     Dosage: 18 MCG
     Route: 055
     Dates: start: 201209
  2. DULERA INHALER [Concomitant]
     Indication: ASTHMA
     Dosage: 4 PUF
  3. TOPAMAX [Concomitant]
     Indication: MIGRAINE
     Dosage: 200 MG
     Route: 048
  4. PREDNISONE [Concomitant]
     Indication: ASTHMA
     Dosage: 30 MG
     Route: 048
  5. ALBUTEROL NEBULIZER [Concomitant]
     Indication: ASTHMA
     Route: 055
  6. SINGULAIR [Concomitant]
     Indication: HYPERSENSITIVITY
     Dosage: 10 MG
     Route: 048
  7. IMITREX [Concomitant]
     Indication: MIGRAINE
     Route: 048
  8. ALBUTEROL INHALER [Concomitant]
     Indication: ASTHMA
     Route: 055
  9. METHOTREXATE [Concomitant]
     Indication: ASTHMA
     Dosage: NO
     Route: 048
  10. PRILOSEC [Concomitant]
     Dosage: 20 MG
     Route: 048

REACTIONS (1)
  - Asthma [Recovered/Resolved]
